FAERS Safety Report 4338849-6 (Version None)
Quarter: 2004Q2

REPORT INFORMATION
  Report Type: 
  Country: None (occurrence: None)
  Receive Date: 20040413
  Receipt Date: 20040326
  Transmission Date: 20050107
  Serious: Yes (Disabling)
  Sender: FDA-Public Use
  Company Number: TNZUK200400037

PATIENT
  Age: 48 Year
  Sex: Female
  Weight: 85 kg

DRUGS (5)
  1. INNOHEP [Suspect]
     Indication: DEEP VEIN THROMBOSIS
     Dosage: (TWICE DAILY), SUBCUTANEOUS
     Route: 058
     Dates: start: 20040212, end: 20040215
  2. WARFARIN SODIUM [Concomitant]
  3. CODEINE (CODEINE) [Concomitant]
  4. ALMOTRIPTAN (ALMOTRIPTAN) [Concomitant]
  5. TRAMADOL HCL [Concomitant]

REACTIONS (1)
  - HEPATITIS [None]
